FAERS Safety Report 9894469 (Version 1)
Quarter: 2014Q1

REPORT INFORMATION
  Report Type: Spontaneous
  Country: AU (occurrence: AU)
  Receive Date: 20140213
  Receipt Date: 20140213
  Transmission Date: 20141002
  Serious: Yes (Other)
  Sender: FDA-Public Use
  Company Number: AU-PFIZER INC-2014038995

PATIENT
  Sex: Female

DRUGS (4)
  1. LYRICA [Suspect]
     Dosage: 25 MG, UNK
  2. KALMA [Concomitant]
     Dosage: UNK
  3. ENDEP [Concomitant]
     Dosage: UNK
  4. EFEXOR [Concomitant]
     Dosage: UNK

REACTIONS (5)
  - Abasia [Unknown]
  - Malaise [Unknown]
  - Pain [Unknown]
  - Nervousness [Unknown]
  - Fatigue [Unknown]
